FAERS Safety Report 5945315-0 (Version None)
Quarter: 2008Q4

REPORT INFORMATION
  Report Type: 
  Country: None (occurrence: None)
  Receive Date: 20081107
  Receipt Date: 20081105
  Transmission Date: 20090506
  Serious: Yes (Death)
  Sender: FDA-Public Use
  Company Number: US-ASTRAZENECA-2008AC02861

PATIENT
  Age: 48 Year
  Sex: Female

DRUGS (5)
  1. QUETIAPINE FUMARATE [Suspect]
     Route: 048
  2. METHADONE HCL [Suspect]
     Route: 048
  3. DEXTROMETHORPHAN [Suspect]
     Route: 048
  4. PROMETHAZINE [Suspect]
     Route: 048
  5. DIAZEPAM [Suspect]
     Route: 048

REACTIONS (2)
  - DRUG TOXICITY [None]
  - MULTIPLE DRUG OVERDOSE [None]
